FAERS Safety Report 25702426 (Version 1)
Quarter: 2025Q3

REPORT INFORMATION
  Report Type: Spontaneous
  Country: CN (occurrence: CN)
  Receive Date: 20250819
  Receipt Date: 20250819
  Transmission Date: 20251021
  Serious: Yes (Hospitalization)
  Sender: MERCK SHARP & DOHME LLC
  Company Number: CN-009507513-2318093

PATIENT
  Age: 56 Year
  Sex: Male
  Weight: 63 kg

DRUGS (3)
  1. KEYTRUDA [Suspect]
     Active Substance: PEMBROLIZUMAB
     Indication: Hepatic cancer
     Dosage: 200 MG, ONCE
     Route: 042
     Dates: start: 20250702, end: 20250702
  2. ELOXATIN [Suspect]
     Active Substance: OXALIPLATIN
     Indication: Hepatic cancer
     Dosage: 50 MG, ONCE
     Route: 042
     Dates: start: 20250630, end: 20250630
  3. PACLITAXEL [Suspect]
     Active Substance: PACLITAXEL
     Indication: Hepatic cancer
     Dosage: 100 MG, ONCE
     Route: 042
     Dates: start: 20250630, end: 20250630

REACTIONS (2)
  - Myelosuppression [Unknown]
  - Expired product administered [Unknown]

NARRATIVE: CASE EVENT DATE: 20250702
